FAERS Safety Report 16646061 (Version 1)
Quarter: 2019Q3

REPORT INFORMATION
  Report Type: Spontaneous
  Country: FR (occurrence: FR)
  Receive Date: 20190730
  Receipt Date: 20190730
  Transmission Date: 20191004
  Serious: Yes (Hospitalization)
  Sender: FDA-Public Use
  Company Number: FR-ROCHE-2363300

PATIENT
  Age: 43 Year
  Sex: Male
  Weight: 140 kg

DRUGS (9)
  1. ZUCLOPENTHIXOL [Suspect]
     Active Substance: ZUCLOPENTHIXOL
     Indication: SCHIZOPHRENIA
     Route: 048
     Dates: start: 20190608, end: 20190619
  2. SULFARLEM [Concomitant]
     Active Substance: ANETHOLTRITHION
  3. RAMIPRIL. [Concomitant]
     Active Substance: RAMIPRIL
  4. LOXAPAC [LOXAPINE] [Suspect]
     Active Substance: LOXAPINE
     Indication: SCHIZOPHRENIA
     Route: 048
     Dates: start: 20190609, end: 20190614
  5. LOXEN L P [Concomitant]
     Active Substance: NICARDIPINE HYDROCHLORIDE
  6. VALIUM [Suspect]
     Active Substance: DIAZEPAM
     Indication: AGITATION
     Route: 048
     Dates: start: 20190608
  7. RILMENIDINE [Concomitant]
     Active Substance: RILMENIDINE
  8. HALDOL DECANOAS [Suspect]
     Active Substance: HALOPERIDOL DECANOATE
     Indication: SCHIZOPHRENIA
     Route: 030
     Dates: start: 20190612
  9. METFORMIN [Concomitant]
     Active Substance: METFORMIN HYDROCHLORIDE
     Route: 065

REACTIONS (1)
  - Hypothermia [Recovered/Resolved]

NARRATIVE: CASE EVENT DATE: 20190613
